FAERS Safety Report 11620028 (Version 1)
Quarter: 2015Q4

REPORT INFORMATION
  Report Type: Spontaneous
  Country: US (occurrence: US)
  Receive Date: 20151012
  Receipt Date: 20151012
  Transmission Date: 20160304
  Serious: No
  Sender: FDA-Public Use
  Company Number: US-WARNER CHILCOTT, LLC-1042822

PATIENT
  Sex: Female

DRUGS (4)
  1. CHOLESTYRAMINE LIGHT [Concomitant]
     Active Substance: CHOLESTYRAMINE
  2. CHLORDIAZEPOXIDE HYDROCHLORIDE AND CLIDINIUM BROMIDE [Concomitant]
     Active Substance: CHLORDIAZEPOXIDE HYDROCHLORIDE\CLIDINIUM BROMIDE
  3. URSODIOL. [Concomitant]
     Active Substance: URSODIOL
  4. DELZICOL [Suspect]
     Active Substance: MESALAMINE
     Route: 048
     Dates: start: 20150616

REACTIONS (1)
  - Medication residue present [Unknown]
